FAERS Safety Report 24661741 (Version 1)
Quarter: 2024Q4

REPORT INFORMATION
  Report Type: Spontaneous
  Country: CA (occurrence: CA)
  Receive Date: 20241125
  Receipt Date: 20241125
  Transmission Date: 20250115
  Serious: Yes (Hospitalization, Other)
  Sender: BRISTOL-MYERS SQUIBB COMPANY
  Company Number: CA-BRISTOL-MYERS SQUIBB COMPANY-2024-180181

PATIENT
  Age: 62 Year
  Sex: Male

DRUGS (5)
  1. DASATINIB [Suspect]
     Active Substance: DASATINIB
     Indication: Acute myeloid leukaemia
     Route: 048
  2. CYTARABINE [Concomitant]
     Active Substance: CYTARABINE
     Indication: Acute myeloid leukaemia
  3. CYTARABINE [Concomitant]
     Active Substance: CYTARABINE
     Dosage: POWDER FOR SOLUTION INTRATHECAL
  4. DAUNORUBICIN HYDROCHLORIDE [Concomitant]
     Active Substance: DAUNORUBICIN HYDROCHLORIDE
     Indication: Acute myeloid leukaemia
  5. VANCOMYCIN HYDROCHLORIDE [Concomitant]
     Active Substance: VANCOMYCIN HYDROCHLORIDE
     Indication: Enterococcal infection

REACTIONS (11)
  - Face oedema [Recovering/Resolving]
  - Febrile neutropenia [Recovering/Resolving]
  - Hypertransaminasaemia [Recovering/Resolving]
  - Mobility decreased [Recovering/Resolving]
  - Nephropathy toxic [Recovering/Resolving]
  - Physical deconditioning [Recovering/Resolving]
  - Rash morbilliform [Recovering/Resolving]
  - Renal impairment [Recovering/Resolving]
  - Ulcer [Recovering/Resolving]
  - Hospitalisation [Unknown]
  - Off label use [Unknown]
